FAERS Safety Report 13637583 (Version 1)
Quarter: 2017Q2

REPORT INFORMATION
  Report Type: Spontaneous
  Country: US (occurrence: US)
  Receive Date: 20170609
  Receipt Date: 20170609
  Transmission Date: 20170830
  Serious: No
  Sender: FDA-Public Use
  Company Number: US-ELI_LILLY_AND_COMPANY-US201706003350

PATIENT
  Sex: Female

DRUGS (2)
  1. CYMBALTA [Suspect]
     Active Substance: DULOXETINE HYDROCHLORIDE
     Indication: PAIN
     Dosage: 60 MG, UNKNOWN
     Route: 048
     Dates: start: 201609
  2. CYMBALTA [Suspect]
     Active Substance: DULOXETINE HYDROCHLORIDE
     Indication: DEPRESSION

REACTIONS (6)
  - Diarrhoea [Recovered/Resolved]
  - Influenza [Recovered/Resolved]
  - Rosacea [Unknown]
  - Intentional product misuse [Not Recovered/Not Resolved]
  - Nausea [Recovered/Resolved]
  - Blue toe syndrome [Unknown]
